FAERS Safety Report 12239521 (Version 1)
Quarter: 2016Q2

REPORT INFORMATION
  Report Type: Spontaneous
  Country: US (occurrence: US)
  Receive Date: 20160405
  Receipt Date: 20160405
  Transmission Date: 20160815
  Serious: No
  Sender: FDA-Public Use
  Company Number: US-BAYER-2016-065076

PATIENT
  Age: 25 Year
  Sex: Male
  Weight: 63.49 kg

DRUGS (1)
  1. MIRALAX [Suspect]
     Active Substance: POLYETHYLENE GLYCOL 3350
     Indication: LAXATIVE SUPPORTIVE CARE
     Dosage: 1 DOSE, QD
     Route: 048
     Dates: start: 201601

REACTIONS (1)
  - Off label use [None]

NARRATIVE: CASE EVENT DATE: 201601
